FAERS Safety Report 8818657 (Version 1)
Quarter: 2012Q4

REPORT INFORMATION
  Report Type: 
  Country: DE (occurrence: DE)
  Receive Date: 20121001
  Receipt Date: 20121001
  Transmission Date: 20130627
  Serious: Yes (Hospitalization, Congenital Anomaly)
  Sender: FDA-Public Use
  Company Number: GXKR2012DE003041

PATIENT

DRUGS (4)
  1. DOXEPIN [Suspect]
     Dosage: Maternal dose125 [mg/d ]/ from Dec2010, end date not known, at least until 21Feb2011
     Route: 064
  2. PAROXETINE [Suspect]
     Dosage: Maternal dose: 60 [mg/d ] (gw 20 - gw 40)
     Route: 064
  3. CARBAMAZEPINE [Suspect]
     Dosage: Maternal dose: 3 x 1 tablet (gw 9 - gw 11)
     Route: 064
  4. DISTRANEURIN [Suspect]
     Dosage: if required. Exact exposure period not given.
     Route: 064

REACTIONS (5)
  - Neonatal respiratory distress syndrome [Recovered/Resolved]
  - Atrial septal defect [Unknown]
  - Ventricular septal defect [Unknown]
  - Pulmonary valve stenosis congenital [Unknown]
  - Foetal exposure during pregnancy [Unknown]
